FAERS Safety Report 4723343-0 (Version None)
Quarter: 2005Q3

REPORT INFORMATION
  Report Type: 
  Country: None (occurrence: None)
  Receive Date: 20050719
  Receipt Date: 20050315
  Transmission Date: 20060218
  Serious: Yes (Other)
  Sender: FDA-Public Use
  Company Number: 2005BI005522

PATIENT
  Age: 47 Year
  Sex: Female
  Weight: 53.5244 kg

DRUGS (10)
  1. AVONEX [Suspect]
     Indication: MULTIPLE SCLEROSIS
     Dosage: 30 UG; QW; IM
     Route: 030
     Dates: start: 20050101
  2. LEVOTHYROXINE SODIUM [Concomitant]
  3. SEROQUEL [Concomitant]
  4. BEXTRA [Concomitant]
  5. NORVASC [Concomitant]
  6. MECLIZINE [Concomitant]
  7. XANAX [Concomitant]
  8. PLAVIX [Concomitant]
  9. KEPPRA [Concomitant]
  10. TRILEPTAL [Concomitant]

REACTIONS (7)
  - CONVULSION [None]
  - DIARRHOEA [None]
  - DIFFICULTY IN WALKING [None]
  - INFLUENZA LIKE ILLNESS [None]
  - PAIN IN EXTREMITY [None]
  - PHARYNGOLARYNGEAL PAIN [None]
  - VOMITING [None]
